FAERS Safety Report 16050395 (Version 1)
Quarter: 2019Q1

REPORT INFORMATION
  Report Type: Spontaneous
  Country: US (occurrence: US)
  Receive Date: 20190308
  Receipt Date: 20190308
  Transmission Date: 20190418
  Serious: Yes (Death, Other)
  Sender: FDA-Public Use
  Company Number: US-009507513-1903USA002200

PATIENT
  Age: 47 Year
  Sex: Male

DRUGS (8)
  1. JANUMET [Suspect]
     Active Substance: METFORMIN HYDROCHLORIDE\SITAGLIPTIN PHOSPHATE
     Dosage: CAUSE RANK: 1
     Route: 048
  2. ACETAMINOPHEN (+) HYDROCODONE BITARTRATE [Suspect]
     Active Substance: ACETAMINOPHEN\HYDROCODONE BITARTRATE
     Dosage: CAUSE RANK: 2; ACETAMINOPHEN (APAP) 14.3 MCG/ML IN BLOOD
     Route: 048
  3. ACETAMINOPHEN (+) HYDROCODONE BITARTRATE [Suspect]
     Active Substance: ACETAMINOPHEN\HYDROCODONE BITARTRATE
     Dosage: ACETAMINOPHEN (APAP) 38.2 MCG/ML IN BLOOD
  4. COZAAR [Suspect]
     Active Substance: LOSARTAN POTASSIUM
     Dosage: CAUSE RANK: 4
     Route: 048
  5. ZOLPIDEM [Suspect]
     Active Substance: ZOLPIDEM\ZOLPIDEM TARTRATE
     Dosage: CAUSE RANK: 6
     Route: 048
  6. LORAZEPAM. [Suspect]
     Active Substance: LORAZEPAM
     Dosage: CAUSE RANK: 3
     Route: 048
  7. ZOCOR [Suspect]
     Active Substance: SIMVASTATIN
     Dosage: CAUSE RANK: 7
     Route: 048
  8. PROBENECID. [Suspect]
     Active Substance: PROBENECID
     Dosage: CAUSE RANK: 5
     Route: 048

REACTIONS (1)
  - Suspected suicide attempt [Fatal]
